FAERS Safety Report 7326595 (Version 3)
Quarter: 2013Q2

REPORT INFORMATION
  Report Type: Spontaneous
  Country: US (occurrence: US)
  Receive Date: 20100322
  Receipt Date: 20130408
  Transmission Date: 20140414
  Serious: Yes (Other)
  Sender: FDA-Public Use
  Company Number: US-BIOGENIDEC-2010BI008415

PATIENT
  Age: 50 Year
  Sex: Female

DRUGS (2)
  1. TYSABRI [Suspect]
     Indication: MULTIPLE SCLEROSIS
     Route: 042
     Dates: start: 20080818
  2. TYSABRI [Suspect]
     Indication: MULTIPLE SCLEROSIS
     Route: 042
     Dates: start: 20080818

REACTIONS (5)
  - Post procedural infection [Recovered/Resolved]
  - Impaired healing [Recovered/Resolved]
  - Cataract [Not Recovered/Not Resolved]
  - Invasive ductal breast carcinoma [Recovered/Resolved]
  - Paget^s disease of nipple [Recovered/Resolved]
